FAERS Safety Report 20538696 (Version 1)
Quarter: 2022Q1

REPORT INFORMATION
  Report Type: Spontaneous
  Country: JP (occurrence: JP)
  Receive Date: 20220302
  Receipt Date: 20220302
  Transmission Date: 20220423
  Serious: Yes (Death)
  Sender: FDA-Public Use
  Company Number: JP-JNJFOC-20210908820

PATIENT
  Age: 5 Decade
  Sex: Female

DRUGS (1)
  1. HALOMONTH [Suspect]
     Active Substance: HALOPERIDOL DECANOATE
     Indication: Schizophrenia
     Dosage: DOSE UNKNOWN,HALOMONTH
     Route: 030
     Dates: start: 2021, end: 2021

REACTIONS (1)
  - Completed suicide [Fatal]
